FAERS Safety Report 9600234 (Version 1)
Quarter: 2013Q4

REPORT INFORMATION
  Report Type: Spontaneous
  Country: US (occurrence: US)
  Receive Date: 20131004
  Receipt Date: 20131004
  Transmission Date: 20140711
  Serious: No
  Sender: FDA-Public Use
  Company Number: US-AMGEN-USASP2013032849

PATIENT
  Age: 48 Year
  Sex: Female
  Weight: 97.05 kg

DRUGS (7)
  1. ENBREL [Suspect]
     Indication: PRODUCT USED FOR UNKNOWN INDICATION
     Dosage: 50 MG, 2 TIMES/WK
     Route: 058
  2. SYNTHROID [Concomitant]
     Dosage: 175 MUG, UNK
  3. CYTOMEL [Concomitant]
     Dosage: 5 MUG, UNK
  4. PREDNISONE [Concomitant]
     Dosage: 1 MG, UNK
  5. FISH OIL [Concomitant]
     Dosage: UNK
  6. CENTRUM                            /02217401/ [Concomitant]
     Dosage: UNK
  7. KLONOPIN [Concomitant]
     Dosage: 1 MG, UNK

REACTIONS (1)
  - Injection site swelling [Recovered/Resolved]
